FAERS Safety Report 7778095-7 (Version None)
Quarter: 2011Q3

REPORT INFORMATION
  Report Type: 
  Country: None (occurrence: None)
  Receive Date: 20110926
  Receipt Date: 20110920
  Transmission Date: 20111222
  Serious: Yes (Hospitalization, Congenital Anomaly, Other)
  Sender: FDA-Public Use
  Company Number: BR-SANOFI-AVENTIS-2011SA061854

PATIENT
  Sex: Female

DRUGS (3)
  1. ENOXAPARIN SODIUM [Suspect]
     Indication: ANTIPHOSPHOLIPID SYNDROME
     Route: 064
     Dates: start: 20101001, end: 20110101
  2. NPH INSULIN [Concomitant]
     Route: 064
     Dates: start: 20100901, end: 20110101
  3. NOVORAPID [Concomitant]
     Route: 064
     Dates: end: 20110101

REACTIONS (2)
  - PREMATURE BABY [None]
  - RENAL CYST [None]
